FAERS Safety Report 12772527 (Version 3)
Quarter: 2016Q4

REPORT INFORMATION
  Report Type: Spontaneous
  Country: JP (occurrence: JP)
  Receive Date: 20160922
  Receipt Date: 20161214
  Transmission Date: 20170207
  Serious: Yes (Hospitalization)
  Sender: FDA-Public Use
  Company Number: JP-009507513-1609JPN008925

PATIENT
  Age: 9 Decade
  Sex: Male

DRUGS (4)
  1. DEPAS [Suspect]
     Active Substance: ETIZOLAM
     Dosage: DAILY DOSAGE UNKNOWN
     Route: 048
  2. LUNESTA [Suspect]
     Active Substance: ESZOPICLONE
     Dosage: UNK
     Route: 048
  3. BELSOMRA [Suspect]
     Active Substance: SUVOREXANT
     Dosage: 15 MG, QD
     Route: 048
  4. DEPAS [Suspect]
     Active Substance: ETIZOLAM
     Dosage: DAILY DOSAGE UNKNOWN
     Route: 048

REACTIONS (2)
  - Somnolence [Unknown]
  - Hyponatraemia [Recovered/Resolved]
